FAERS Safety Report 5885443-1 (Version None)
Quarter: 2008Q3

REPORT INFORMATION
  Report Type: 
  Country: None (occurrence: None)
  Receive Date: 20080915
  Receipt Date: 20080915
  Transmission Date: 20090109
  Serious: Yes (Life-Threatening, Hospitalization, Other)
  Sender: FDA-Public Use
  Company Number: None

PATIENT
  Age: 24 Year
  Sex: Male
  Weight: 108.8633 kg

DRUGS (2)
  1. ZOLPIDEM [Suspect]
     Indication: INSOMNIA
     Dosage: 1 DOSE 10MG ZOLPIDEM 1X PO
     Route: 048
  2. SEROQUEL [Suspect]
     Indication: ANXIETY
     Dosage: 1 DOSE 400MG SEROQUEL 1X PO
     Route: 048

REACTIONS (3)
  - AMNESIA [None]
  - HALLUCINATION [None]
  - PSYCHOTIC DISORDER [None]
